FAERS Safety Report 8469603-1 (Version None)
Quarter: 2012Q2

REPORT INFORMATION
  Report Type: 
  Country: None (occurrence: None)
  Receive Date: 20120626
  Receipt Date: 20120620
  Transmission Date: 20120825
  Serious: Yes (Hospitalization, Other)
  Sender: FDA-Public Use
  Company Number: US-PFIZER INC-2012019143

PATIENT
  Sex: Female

DRUGS (4)
  1. MIRENA [Concomitant]
     Indication: CONTRACEPTION
     Dosage: UNK
     Dates: start: 20040101
  2. VICODIN [Concomitant]
     Indication: PAIN
     Dosage: UNK
     Dates: start: 20080101, end: 20110101
  3. CHANTIX [Suspect]
     Dosage: UNK, STARTER PACK
     Dates: start: 20100202, end: 20100206
  4. CHANTIX [Suspect]
     Indication: SMOKING CESSATION THERAPY
     Dosage: UNK,STARTER PACK AND 1 MG MAINTENANCE PACK
     Dates: start: 20090801, end: 20091001

REACTIONS (14)
  - ANXIETY [None]
  - BIPOLAR DISORDER [None]
  - NIGHTMARE [None]
  - CRYING [None]
  - SUICIDAL IDEATION [None]
  - SELF INJURIOUS BEHAVIOUR [None]
  - ATTENTION DEFICIT/HYPERACTIVITY DISORDER [None]
  - MENTAL DISORDER [None]
  - SUICIDE ATTEMPT [None]
  - PERSONALITY DISORDER [None]
  - SCAR [None]
  - ABNORMAL DREAMS [None]
  - INSOMNIA [None]
  - DEPRESSION [None]
